FAERS Safety Report 13657693 (Version 2)
Quarter: 2017Q3

REPORT INFORMATION
  Report Type: Report from Study
  Country: US (occurrence: US)
  Receive Date: 20170615
  Receipt Date: 20170721
  Transmission Date: 20171127
  Serious: No
  Sender: FDA-Public Use
  Company Number: US-AMGEN-USASL2017089193

PATIENT
  Age: 67 Year
  Sex: Female

DRUGS (1)
  1. ENBREL [Suspect]
     Active Substance: ETANERCEPT
     Indication: PRODUCT USED FOR UNKNOWN INDICATION
     Dosage: 50 MG, UNK
     Route: 065

REACTIONS (10)
  - Injection site discolouration [Recovering/Resolving]
  - Wrong technique in product usage process [Unknown]
  - Injection site warmth [Recovering/Resolving]
  - Injection site erythema [Recovered/Resolved]
  - Surgery [Unknown]
  - Abnormal behaviour [Unknown]
  - Injection site bruising [Unknown]
  - Unevaluable event [Unknown]
  - Injection site pruritus [Recovering/Resolving]
  - Injection site swelling [Recovered/Resolved]
